FAERS Safety Report 7637827-9 (Version None)
Quarter: 2011Q3

REPORT INFORMATION
  Report Type: 
  Country: None (occurrence: None)
  Receive Date: 20110720
  Receipt Date: 20110630
  Transmission Date: 20111222
  Serious: Yes (Other)
  Sender: FDA-Public Use
  Company Number: 2009SS000003

PATIENT
  Age: 60 Year
  Sex: Female
  Weight: 59.8748 kg

DRUGS (2)
  1. BOTULINUM TOXIN TYPE B (BOTULINUM TOXIN TYPE B) (INJECTION) (BOTULINUM [Suspect]
     Indication: BACK PAIN
     Dates: start: 20040101
  2. BUPIVACAINE (BUPIVACAINE HYDROCHLORIDE) [Concomitant]

REACTIONS (11)
  - HYPOAESTHESIA [None]
  - DYSAESTHESIA [None]
  - ARACHNOIDITIS [None]
  - PARAESTHESIA [None]
  - BURNING SENSATION [None]
  - WRONG TECHNIQUE IN DRUG USAGE PROCESS [None]
  - MUSCLE SPASMS [None]
  - MUSCULAR WEAKNESS [None]
  - INCORRECT ROUTE OF DRUG ADMINISTRATION [None]
  - ANAESTHESIA [None]
  - NEURALGIA [None]
